FAERS Safety Report 5871810-9 (Version None)
Quarter: 2008Q3

REPORT INFORMATION
  Report Type: 
  Country: None (occurrence: None)
  Receive Date: 20080904
  Receipt Date: 20080904
  Transmission Date: 20090109
  Serious: Yes (Hospitalization)
  Sender: FDA-Public Use
  Company Number: None

PATIENT
  Sex: Male
  Weight: 89.5 kg

DRUGS (16)
  1. PEG-L- ASPARAGINASE (K-H) [Suspect]
     Dosage: 5000 IU
     Route: 030
  2. PREDNISONE TAB [Suspect]
     Dosage: 1800 MG
     Route: 048
  3. VINCRISTINE SULFATE [Suspect]
     Dosage: 4 MG
     Route: 042
  4. CYTARABINE [Suspect]
     Dosage: 70 MG
     Route: 037
  5. DAUNORUBICIN HCL [Suspect]
     Dosage: 75 MG
     Route: 042
  6. METHOTREXATE [Suspect]
     Dosage: 15 MG
     Route: 037
  7. CEFTRIAXONE [Concomitant]
  8. FUROSEMIDE [Concomitant]
  9. HEPARIN [Concomitant]
  10. LORAZEPAM [Concomitant]
  11. MEROPENEM [Concomitant]
  12. METHYLPREDNISOLONE 16MG TAB [Concomitant]
  13. MORPHINE [Concomitant]
  14. PANTOPRAZOLE [Concomitant]
  15. VANCOMYCIN HYDROCHLORIDE [Concomitant]
  16. ACETAMINOPHEN [Concomitant]

REACTIONS (3)
  - CEREBRAL ISCHAEMIA [None]
  - CEREBRAL VENOUS THROMBOSIS [None]
  - TRANSVERSE SINUS THROMBOSIS [None]
